FAERS Safety Report 7368160-0 (Version None)
Quarter: 2011Q1

REPORT INFORMATION
  Report Type: 
  Country: None (occurrence: None)
  Receive Date: 20110311
  Receipt Date: 20110224
  Transmission Date: 20110831
  Serious: Yes (Hospitalization)
  Sender: FDA-Public Use
  Company Number: CTI_01297_2011

PATIENT
  Sex: Male

DRUGS (3)
  1. ANTIBIOTICS-RESISTANT LACTIC ACID BACTERIAE [Concomitant]
  2. MEIACT (MEIACT MS (CEFDITOREN PIVOXIL) [Suspect]
     Indication: COUGH
     Dosage: 140 MG ORAL
     Route: 048
     Dates: start: 20101231, end: 20110101
  3. MEIACT (MEIACT MS (CEFDITOREN PIVOXIL) [Suspect]
     Indication: RHINORRHOEA
     Dosage: 140 MG ORAL
     Route: 048
     Dates: start: 20101231, end: 20110101

REACTIONS (5)
  - EOSINOPHIL COUNT INCREASED [None]
  - TONSILLITIS [None]
  - TOXIC SKIN ERUPTION [None]
  - HEPATITIS [None]
  - PLATELET COUNT INCREASED [None]
